FAERS Safety Report 17243885 (Version 1)
Quarter: 2020Q1

REPORT INFORMATION
  Report Type: Spontaneous
  Country: US (occurrence: US)
  Receive Date: 20200107
  Receipt Date: 20200107
  Transmission Date: 20200409
  Serious: No
  Sender: FDA-Public Use
  Company Number: US-ROCHE-2364600

PATIENT
  Sex: Male

DRUGS (2)
  1. ACTIVASE [Suspect]
     Active Substance: ALTEPLASE
     Indication: FIBRINOUS BRONCHITIS
  2. ACTIVASE [Suspect]
     Active Substance: ALTEPLASE
     Indication: HYPOPLASTIC LEFT HEART SYNDROME
     Dosage: NEBULIZER?ONGOING YES
     Route: 055

REACTIONS (3)
  - No adverse event [Unknown]
  - Off label use [Unknown]
  - Intentional product use issue [Unknown]
